FAERS Safety Report 9219716 (Version 1)
Quarter: 2013Q2

REPORT INFORMATION
  Report Type: Spontaneous
  Country: US (occurrence: None)
  Receive Date: 20130405
  Receipt Date: 20130405
  Transmission Date: 20140414
  Serious: Yes (Other)
  Sender: FDA-Public Use
  Company Number: E2B_00000700

PATIENT
  Sex: Female
  Weight: 90.72 kg

DRUGS (1)
  1. LISINOPRIL [Suspect]
     Indication: BLOOD PRESSURE
     Dosage: 20 MG (10 MG, 2 IN 1 D), PER ORAL
     Route: 048

REACTIONS (1)
  - Coeliac disease [None]
